FAERS Safety Report 5196471-6 (Version None)
Quarter: 2006Q4

REPORT INFORMATION
  Report Type: 
  Country: None (occurrence: None)
  Receive Date: 20061227
  Receipt Date: 20061214
  Transmission Date: 20070319
  Serious: Yes (Hospitalization)
  Sender: FDA-Public Use
  Company Number: 2006-03223

PATIENT
  Age: 65 Year
  Sex: Male
  Weight: 89 kg

DRUGS (10)
  1. VELCADE [Suspect]
     Indication: B-CELL LYMPHOMA
     Dosage: 3.00 MG, INTRAVENOUS
     Route: 042
     Dates: start: 20061016, end: 20061109
  2. LEVODOPA W/BENSERAZIDE/ (LEVODOPA, BENSERAZIDE) [Concomitant]
  3. LEVOTHYROXINE SODIUM [Concomitant]
  4. TRIMETAZIDINE [Concomitant]
  5. ALLOPURINOL SODIUM [Concomitant]
  6. FLUOXETINE [Concomitant]
  7. NITROGLYCERIN [Concomitant]
  8. FLUINDIONE [Concomitant]
  9. AMLODIPINE [Concomitant]
  10. ALPRAZOLAM [Concomitant]

REACTIONS (5)
  - DUODENAL ULCER HAEMORRHAGE [None]
  - HIATUS HERNIA [None]
  - LYMPHADENOPATHY [None]
  - NORMOCHROMIC NORMOCYTIC ANAEMIA [None]
  - THROMBOCYTOPENIA [None]
